FAERS Safety Report 16337760 (Version 2)
Quarter: 2019Q2

REPORT INFORMATION
  Report Type: Report from Study
  Country: BE (occurrence: BE)
  Receive Date: 20190521
  Receipt Date: 20190603
  Transmission Date: 20190711
  Serious: Yes (Hospitalization, Other)
  Sender: FDA-Public Use
  Company Number: BE-BRISTOL-MYERS SQUIBB COMPANY-BMS-2019-022080

PATIENT
  Age: 53 Year
  Sex: Female

DRUGS (8)
  1. NIVOLUMAB [Suspect]
     Active Substance: NIVOLUMAB
     Indication: MALIGNANT MELANOMA
     Dosage: UNK
     Route: 065
     Dates: start: 20190225
  2. IPILIMUMAB [Suspect]
     Active Substance: IPILIMUMAB
     Indication: MALIGNANT MELANOMA
     Dosage: UNK
     Route: 065
     Dates: start: 20190225
  3. ELTROXIN [Concomitant]
     Active Substance: LEVOTHYROXINE
     Indication: PRODUCT USED FOR UNKNOWN INDICATION
     Dosage: UNK
     Route: 065
  4. VITAMINS                           /00067501/ [Concomitant]
     Active Substance: VITAMINS
     Indication: PRODUCT USED FOR UNKNOWN INDICATION
     Dosage: UNK
     Route: 065
  5. DAFLON                             /00426001/ [Concomitant]
     Active Substance: DIOSMIN
     Indication: PRODUCT USED FOR UNKNOWN INDICATION
     Route: 065
  6. OMEGA 3                            /01333901/ [Concomitant]
     Active Substance: FISH OIL\TOCOPHEROL
     Indication: PRODUCT USED FOR UNKNOWN INDICATION
     Route: 065
  7. MEDROL [Concomitant]
     Active Substance: METHYLPREDNISOLONE
     Indication: PRODUCT USED FOR UNKNOWN INDICATION
     Route: 065
  8. ANGELIQ [Concomitant]
     Active Substance: DROSPIRENONE\ESTRADIOL
     Indication: PRODUCT USED FOR UNKNOWN INDICATION
     Route: 065

REACTIONS (24)
  - Hepatotoxicity [Unknown]
  - Dyspnoea [Recovering/Resolving]
  - Skin mass [Unknown]
  - Conjunctivitis [Unknown]
  - Tremor [Unknown]
  - Gastrointestinal disorder [Unknown]
  - Diarrhoea [Unknown]
  - Headache [Unknown]
  - Alopecia [Unknown]
  - Muscle atrophy [Unknown]
  - Central nervous system lesion [Unknown]
  - Vomiting [Unknown]
  - Hyperhidrosis [Unknown]
  - Fatigue [Unknown]
  - Back disorder [Unknown]
  - Oedema peripheral [Unknown]
  - Feeling hot [Unknown]
  - Decreased appetite [Recovering/Resolving]
  - Poor quality sleep [Unknown]
  - Cerebral disorder [Unknown]
  - Weight decreased [Unknown]
  - Eye swelling [Unknown]
  - Cough [Unknown]
  - Constipation [Unknown]

NARRATIVE: CASE EVENT DATE: 20190226
